FAERS Safety Report 6933038-0 (Version None)
Quarter: 2010Q3

REPORT INFORMATION
  Report Type: 
  Country: None (occurrence: None)
  Receive Date: 20100818
  Receipt Date: 20100818
  Transmission Date: 20110219
  Serious: Yes (Other)
  Sender: FDA-Public Use
  Company Number: None

PATIENT
  Age: 46 Year
  Sex: Female
  Weight: 64.8644 kg

DRUGS (8)
  1. COLCHICINE, 1.2 MG, GENERIC [Suspect]
     Indication: APHTHOUS STOMATITIS
     Dosage: 2003 DAILY ORAL
     Route: 048
     Dates: start: 20031001, end: 20100301
  2. PLAQUENIL [Suspect]
     Indication: INFLAMMATION
     Dosage: 2003 2X PER DAY ORAL
     Route: 048
     Dates: start: 20041001, end: 20100401
  3. IVIG INFUSION [Concomitant]
  4. LOVENOX [Concomitant]
  5. THROID MED [Concomitant]
  6. BACLOFEN [Concomitant]
  7. OPIATES [Concomitant]
  8. OXYGEN [Concomitant]

REACTIONS (7)
  - ASTHENIA [None]
  - DEHYDRATION [None]
  - DYSPHAGIA [None]
  - LIVER FUNCTION TEST ABNORMAL [None]
  - MASTICATION DISORDER [None]
  - MULTIPLE SCLEROSIS [None]
  - RESPIRATORY DISORDER [None]
